FAERS Safety Report 20085480 (Version 1)
Quarter: 2021Q4

REPORT INFORMATION
  Report Type: Spontaneous
  Country: US (occurrence: US)
  Receive Date: 20211118
  Receipt Date: 20211118
  Transmission Date: 20220303
  Serious: No
  Sender: FDA-Public Use
  Company Number: US-NOVARTISTESTPH-NVSC2021US261160

PATIENT

DRUGS (8)
  1. CEFTAZIDIME [Suspect]
     Active Substance: CEFTAZIDIME
     Indication: Product used for unknown indication
     Route: 065
  2. MEROPENEM [Suspect]
     Active Substance: MEROPENEM
     Indication: Product used for unknown indication
     Route: 065
  3. GENTAMICIN SULFATE [Suspect]
     Active Substance: GENTAMICIN SULFATE
     Indication: Product used for unknown indication
     Route: 065
  4. CEFEPIME HYDROCHLORIDE [Suspect]
     Active Substance: CEFEPIME HYDROCHLORIDE
     Indication: Product used for unknown indication
     Route: 065
  5. TOBRAMYCIN [Suspect]
     Active Substance: TOBRAMYCIN
     Indication: Product used for unknown indication
     Route: 065
  6. VANCOMYCIN HYDROCHLORIDE [Suspect]
     Active Substance: VANCOMYCIN HYDROCHLORIDE
     Indication: Product used for unknown indication
     Route: 065
  7. TAZICEF [Suspect]
     Active Substance: CEFTAZIDIME
     Indication: Product used for unknown indication
     Dosage: 6G /100ML
     Route: 065
     Dates: start: 20210411
  8. ZOSYN [Suspect]
     Active Substance: PIPERACILLIN SODIUM\TAZOBACTAM SODIUM
     Indication: Product used for unknown indication
     Route: 065

REACTIONS (1)
  - Drug ineffective [Unknown]
